FAERS Safety Report 4783399-6 (Version None)
Quarter: 2005Q3

REPORT INFORMATION
  Report Type: 
  Country: None (occurrence: None)
  Receive Date: 20050929
  Receipt Date: 20050729
  Transmission Date: 20060218
  Serious: Yes (Hospitalization, Disabling)
  Sender: FDA-Public Use
  Company Number: JP-SANOFI-SYNTHELABO-A01200505348

PATIENT
  Sex: Female

DRUGS (4)
  1. BONZOL [Suspect]
     Indication: APLASTIC ANAEMIA
     Dosage: 200 MG
     Route: 048
     Dates: start: 20030513, end: 20030616
  2. BONZOL [Suspect]
     Dosage: 400 MG
     Route: 048
     Dates: start: 20030617, end: 20040528
  3. BONZOL [Suspect]
     Dosage: 200 MG
     Route: 048
     Dates: start: 20040529, end: 20050629
  4. LEUPLIN [Concomitant]
     Indication: DRUG USE FOR UNKNOWN INDICATION
     Dosage: UNK
     Route: 065
     Dates: start: 20050630

REACTIONS (6)
  - ABDOMINAL PAIN UPPER [None]
  - DRUG INEFFECTIVE [None]
  - HAEMOGLOBIN DECREASED [None]
  - PLATELET COUNT DECREASED [None]
  - SPLEEN DISORDER [None]
  - SPLENOMEGALY [None]
